FAERS Safety Report 24279192 (Version 3)
Quarter: 2024Q3

REPORT INFORMATION
  Report Type: Spontaneous
  Country: JP (occurrence: JP)
  Receive Date: 20240903
  Receipt Date: 20240930
  Transmission Date: 20241016
  Serious: Yes (Hospitalization, Other)
  Sender: EISAI
  Company Number: JP-Eisai-202406609_LEN-HCC_P_1

PATIENT
  Sex: Female

DRUGS (4)
  1. LENVATINIB [Suspect]
     Active Substance: LENVATINIB
     Indication: Hepatocellular carcinoma
     Route: 048
  2. LENVATINIB [Suspect]
     Active Substance: LENVATINIB
     Dosage: DOSE AND FREQUENCY UNKNOWN
     Route: 048
  3. IMFINZI [Suspect]
     Active Substance: DURVALUMAB
     Indication: Hepatocellular carcinoma
     Dosage: DOSE AND FREQUENCY WERE UNKNOWN.
  4. IMJUDO [Suspect]
     Active Substance: TREMELIMUMAB\TREMELIMUMAB-ACTL
     Indication: Hepatocellular carcinoma
     Dosage: DOSE AND FREQUENCY WERE UNKNOWN.

REACTIONS (4)
  - Tumour lysis syndrome [Recovering/Resolving]
  - Cytokine release syndrome [Recovering/Resolving]
  - Fluid retention [Recovering/Resolving]
  - Liver carcinoma ruptured [Recovering/Resolving]
